FAERS Safety Report 8611923 (Version 2)
Quarter: 2012Q4

REPORT INFORMATION
  Report Type: 
  Country: JP (occurrence: JP)
  Receive Date: 20120613
  Receipt Date: 20121219
  Transmission Date: 20130627
  Serious: Yes (Other)
  Sender: FDA-Public Use
  Company Number: PHHY2012JP046819

PATIENT
  Age: 39 Year
  Sex: Female

DRUGS (4)
  1. IMUSERA [Suspect]
     Indication: MULTIPLE SCLEROSIS
     Dosage: 0.5 mg, QD
     Route: 048
     Dates: start: 20120515, end: 20120517
  2. LYRICA [Concomitant]
     Dosage: 450 mg, UNK
     Route: 048
  3. LENDORMIN [Concomitant]
     Dosage: 0.25 mg, UNK
     Route: 048
  4. IDOMETHINE [Concomitant]
     Dosage: UNK UKN, UNK
     Route: 061

REACTIONS (4)
  - Central nervous system lesion [Unknown]
  - Electrocardiogram PR prolongation [Unknown]
  - Atrioventricular block second degree [Recovered/Resolved]
  - Heart rate decreased [Unknown]
